FAERS Safety Report 7960366-2 (Version None)
Quarter: 2011Q4

REPORT INFORMATION
  Report Type: 
  Country: None (occurrence: None)
  Receive Date: 20111206
  Receipt Date: 20111124
  Transmission Date: 20120403
  Serious: Yes (Hospitalization, Other)
  Sender: FDA-Public Use
  Company Number: CA-JNJFOC-20111202109

PATIENT
  Sex: Male
  Weight: 72.9 kg

DRUGS (13)
  1. ASPIRIN [Concomitant]
  2. PLAVIX [Concomitant]
  3. CELEBREX [Concomitant]
  4. REMICADE [Suspect]
     Indication: RHEUMATOID ARTHRITIS
     Route: 042
  5. LIPITOR [Concomitant]
  6. RAMIPRIL [Concomitant]
  7. NEXIUM [Concomitant]
  8. IRON [Concomitant]
  9. FOLIC ACID [Concomitant]
  10. POTASSIUM ACETATE [Concomitant]
  11. REMICADE [Suspect]
     Route: 042
     Dates: start: 20021101
  12. BISOPROLOL FUMARATE [Concomitant]
  13. CALCIUM [Concomitant]

REACTIONS (2)
  - MYOCARDIAL INFARCTION [None]
  - PNEUMONIA [None]
